FAERS Safety Report 5952515-2 (Version None)
Quarter: 2008Q4

REPORT INFORMATION
  Report Type: 
  Country: None (occurrence: None)
  Receive Date: 20081113
  Receipt Date: 20081105
  Transmission Date: 20090506
  Serious: Yes (Other)
  Sender: FDA-Public Use
  Company Number: US-PFIZER INC-2008094134

PATIENT
  Sex: Male
  Weight: 81.8 kg

DRUGS (4)
  1. CHANTIX [Suspect]
     Indication: SMOKING CESSATION THERAPY
     Dates: start: 20080901, end: 20081101
  2. CHOLESTEROL [Concomitant]
  3. ANTIHYPERTENSIVES [Concomitant]
  4. DRUG USED IN DIABETES [Concomitant]

REACTIONS (3)
  - ABNORMAL DREAMS [None]
  - ANEURYSM [None]
  - INSOMNIA [None]
